FAERS Safety Report 10352510 (Version 1)
Quarter: 2014Q3

REPORT INFORMATION
  Report Type: Spontaneous
  Country: US (occurrence: US)
  Receive Date: 20140730
  Receipt Date: 20140730
  Transmission Date: 20150326
  Serious: No
  Sender: FDA-Public Use
  Company Number: US-ABBVIE-13P-163-1167811-00

PATIENT
  Age: 15 Year
  Sex: Female
  Weight: 53.57 kg

DRUGS (2)
  1. SYNTHROID [Suspect]
     Active Substance: LEVOTHYROXINE SODIUM
     Indication: HYPOTHYROIDISM
     Dosage: ONE HALF TABLET
     Dates: start: 2010
  2. FLONASE [Concomitant]
     Active Substance: FLUTICASONE PROPIONATE
     Indication: SEASONAL ALLERGY

REACTIONS (2)
  - Fatigue [Not Recovered/Not Resolved]
  - Anti-transglutaminase antibody increased [Not Recovered/Not Resolved]
